FAERS Safety Report 8504693-9 (Version None)
Quarter: 2012Q3

REPORT INFORMATION
  Report Type: 
  Country: None (occurrence: None)
  Receive Date: 20120711
  Receipt Date: 20120629
  Transmission Date: 20120928
  Serious: Yes (Other)
  Sender: FDA-Public Use
  Company Number: GB-ROCHE-1083354

PATIENT
  Sex: Male

DRUGS (6)
  1. CYCLOPHOSPHAMIDE [Concomitant]
  2. PREDNISOLONE [Concomitant]
  3. DEXAMETHASONE [Concomitant]
  4. DOXORUBICIN HCL [Concomitant]
  5. MABTHERA [Suspect]
     Indication: B-CELL SMALL LYMPHOCYTIC LYMPHOMA
  6. VINCRISTINE [Concomitant]

REACTIONS (2)
  - TREMOR [None]
  - LYMPHOPLASMACYTOID LYMPHOMA/IMMUNOCYTOMA [None]
